FAERS Safety Report 8791891 (Version 1)
Quarter: 2012Q4

REPORT INFORMATION
  Report Type: 
  Country: US (occurrence: US)
  Receive Date: 20120918
  Receipt Date: 20120918
  Transmission Date: 20130627
  Serious: No
  Sender: FDA-Public Use
  Company Number: US-ASTRAZENECA-2012SE71061

PATIENT
  Age: 78 Year
  Sex: Female
  Weight: 79.4 kg

DRUGS (8)
  1. PULMICORT RESPULES [Suspect]
     Dosage: 1 mg/ 2 ml
     Route: 055
     Dates: start: 2009
  2. OXYGEN [Concomitant]
  3. GABAPENTIN [Concomitant]
  4. FUROSEMIDE [Concomitant]
  5. WARFARIN [Concomitant]
  6. NITROFUR [Concomitant]
  7. POTASSIUM CHLORIDE [Concomitant]
  8. ISOSORBIDE [Concomitant]

REACTIONS (7)
  - Diarrhoea [Unknown]
  - Rhinorrhoea [Unknown]
  - Nasal congestion [Unknown]
  - Nasal discomfort [Unknown]
  - Multiple allergies [Unknown]
  - Feeling of body temperature change [Unknown]
  - Off label use [Unknown]
